FAERS Safety Report 8949845 (Version 4)
Quarter: 2014Q2

REPORT INFORMATION
  Report Type: Report from Study
  Country: JP (occurrence: JP)
  Receive Date: 20121206
  Receipt Date: 20140629
  Transmission Date: 20141212
  Serious: Yes (Hospitalization, Other)
  Sender: FDA-Public Use
  Company Number: PHHY2012JP111708

PATIENT
  Age: 49 Year
  Sex: Male
  Weight: 56 kg

DRUGS (19)
  1. FTY 720 [Suspect]
     Indication: MULTIPLE SCLEROSIS
     Dosage: 0.5 MG, QD
     Route: 048
     Dates: start: 20120314
  2. SENNOSIDE [Concomitant]
     Indication: CONSTIPATION
     Dosage: 24 MG, UNK
     Route: 048
  3. AVONEX [Concomitant]
     Indication: MULTIPLE SCLEROSIS
     Route: 030
     Dates: start: 20120221
  4. PREDONINE [Concomitant]
     Indication: MULTIPLE SCLEROSIS
     Dosage: 15 MG, UNK
     Route: 048
     Dates: start: 20120228
  5. PREDONINE [Concomitant]
     Dosage: 25 MG, UNK
     Route: 048
  6. PREDONINE [Concomitant]
     Dosage: 60 MG, UNK
     Route: 048
  7. PRIDOL [Concomitant]
     Indication: MULTIPLE SCLEROSIS
     Dosage: 1000 MG, UNK
     Dates: start: 20120223
  8. PRIDOL [Concomitant]
     Dosage: 500 MG, UNK
     Dates: start: 20120225
  9. BASEN [Concomitant]
     Indication: DIABETES MELLITUS
     Dosage: 0.4 MG, UNK
     Route: 048
  10. AMARYL [Concomitant]
     Indication: DIABETES MELLITUS
     Dosage: 0.5 MG, UNK
     Route: 048
  11. ECARD [Concomitant]
     Indication: HYPERTENSION
     Dosage: 1 DF, UNK
     Route: 048
  12. LIVALO [Concomitant]
     Indication: HYPERLIPIDAEMIA
     Dosage: 2 MG, UNK
     Route: 048
  13. DANTRIUM [Concomitant]
     Dosage: 50 MG, UNK
     Route: 048
  14. TAKEPRON [Concomitant]
     Dosage: 30 MG, UNK
     Route: 048
  15. BONALON [Concomitant]
     Dosage: 5 MG, UNK
     Route: 048
  16. POLYFUL [Concomitant]
     Dosage: 1.8 G, UNK
     Route: 048
  17. DEPAKENE-R [Concomitant]
     Indication: BIPOLAR DISORDER
     Dosage: 600 MG, UNK
     Route: 048
  18. RISPERDAL [Concomitant]
     Indication: BIPOLAR DISORDER
     Dosage: 1 MG, UNK
     Route: 048
  19. AMOBAN CHUGAI [Concomitant]
     Indication: INSOMNIA
     Dosage: 10 MG, UNK
     Route: 048

REACTIONS (5)
  - Bipolar disorder [Recovering/Resolving]
  - Concomitant disease aggravated [Recovering/Resolving]
  - Visual field defect [Recovered/Resolved]
  - Lymphocyte count decreased [Unknown]
  - Gamma-glutamyltransferase increased [Unknown]
